FAERS Safety Report 5209328-9 (Version None)
Quarter: 2006Q4

REPORT INFORMATION
  Report Type: 
  Country: None (occurrence: None)
  Receive Date: 20061101
  Receipt Date: 20060725
  Transmission Date: 20070319
  Serious: Yes (Hospitalization)
  Sender: FDA-Public Use
  Company Number: DSA_28524_2006

PATIENT
  Age: 79 Year
  Sex: Female

DRUGS (6)
  1. ATIVAN [Suspect]
     Dosage: DF ONCE PO
     Route: 048
     Dates: start: 20051201, end: 20051201
  2. LUNESTA [Concomitant]
  3. LIPITOR [Concomitant]
  4. LEXAPRO [Concomitant]
  5. NORVASC [Concomitant]
  6. FOSAMAX [Concomitant]

REACTIONS (1)
  - OVERDOSE [None]
